FAERS Safety Report 25067832 (Version 4)
Quarter: 2025Q2

REPORT INFORMATION
  Report Type: Report from Study
  Country: US (occurrence: US)
  Receive Date: 20250312
  Receipt Date: 20250519
  Transmission Date: 20250716
  Serious: Yes (Life-Threatening, Hospitalization, Other)
  Sender: UCB
  Company Number: US-UCBSA-2024064015

PATIENT
  Age: 44 Year
  Sex: Female
  Weight: 56.2 kg

DRUGS (4)
  1. ROZANOLIXIZUMAB [Suspect]
     Active Substance: ROZANOLIXIZUMAB
     Indication: Myasthenia gravis
     Route: 058
     Dates: start: 20241023
  2. ROZANOLIXIZUMAB [Suspect]
     Active Substance: ROZANOLIXIZUMAB
     Route: 058
     Dates: start: 20241218, end: 20250219
  3. PYRIDOSTIGMINE [Concomitant]
     Active Substance: PYRIDOSTIGMINE
     Indication: Thymectomy
     Dosage: UNK, 4X/DAY (QID) (120 MG-90 MG-90 MG-90 MG)
     Route: 048
  4. PYRIDOSTIGMINE BROMIDE [Concomitant]
     Active Substance: PYRIDOSTIGMINE BROMIDE
     Indication: Myasthenia gravis
     Dosage: 120 MILLIGRAM, 4X/DAY (QID)
     Route: 048

REACTIONS (8)
  - Pneumonia [Recovered/Resolved]
  - Myasthenia gravis [Recovered/Resolved]
  - Asthenia [Recovering/Resolving]
  - Hypoaesthesia oral [Not Recovered/Not Resolved]
  - Lacrimation increased [Not Recovered/Not Resolved]
  - COVID-19 [Recovered/Resolved]
  - Streptococcal infection [Recovered/Resolved]
  - Influenza [Recovered/Resolved]

NARRATIVE: CASE EVENT DATE: 20241201
